FAERS Safety Report 16004128 (Version 1)
Quarter: 2019Q1

REPORT INFORMATION
  Report Type: Spontaneous
  Country: US (occurrence: US)
  Receive Date: 20190129
  Receipt Date: 20190129
  Transmission Date: 20190418
  Serious: No
  Sender: FDA-Public Use
  Company Number: None

PATIENT
  Age: 63 Year
  Sex: Female
  Weight: 117.93 kg

DRUGS (2)
  1. FORTEO [Suspect]
     Active Substance: TERIPARATIDE
     Indication: RHEUMATOID ARTHRITIS
     Route: 058
     Dates: start: 201812
  2. FORTEO [Suspect]
     Active Substance: TERIPARATIDE
     Indication: OSTEOPOROSIS

REACTIONS (2)
  - Infection [None]
  - Cellulitis [None]
